FAERS Safety Report 22047861 (Version 2)
Quarter: 2025Q2

REPORT INFORMATION
  Report Type: Spontaneous
  Country: DE (occurrence: DE)
  Receive Date: 20230301
  Receipt Date: 20250521
  Transmission Date: 20250716
  Serious: Yes (Hospitalization, Other)
  Sender: ROCHE
  Company Number: DE-ROCHE-3296493

PATIENT

DRUGS (1)
  1. OCRELIZUMAB [Suspect]
     Active Substance: OCRELIZUMAB
     Indication: Product used for unknown indication
     Route: 065

REACTIONS (8)
  - Fatigue [Unknown]
  - Multiple sclerosis [Recovered/Resolved]
  - Pyrexia [Unknown]
  - Infection [Unknown]
  - Influenza like illness [Unknown]
  - Multiple sclerosis relapse [Unknown]
  - COVID-19 [Unknown]
  - Infection susceptibility increased [Unknown]
